FAERS Safety Report 9470915 (Version 1)
Quarter: 2013Q3

REPORT INFORMATION
  Report Type: Report from Study
  Country: US (occurrence: US)
  Receive Date: 20130822
  Receipt Date: 20130822
  Transmission Date: 20140515
  Serious: Yes (Other)
  Sender: FDA-Public Use
  Company Number: US-ABBOTT-13P-163-1134315-00

PATIENT
  Age: 65 Year
  Sex: Female
  Weight: 128.03 kg

DRUGS (13)
  1. HUMIRA [Suspect]
     Indication: PSORIATIC ARTHROPATHY
     Route: 058
     Dates: end: 201305
  2. HUMIRA [Suspect]
     Route: 058
     Dates: start: 20130810
  3. TRAMADOL [Concomitant]
     Indication: PRODUCT USED FOR UNKNOWN INDICATION
  4. DIOVAN [Concomitant]
     Indication: PRODUCT USED FOR UNKNOWN INDICATION
  5. HYDROCHLOROTHIAZIDE [Concomitant]
     Indication: PRODUCT USED FOR UNKNOWN INDICATION
  6. LORAZEPAM [Concomitant]
     Indication: PRODUCT USED FOR UNKNOWN INDICATION
  7. FENOFIBRATE [Concomitant]
     Indication: PRODUCT USED FOR UNKNOWN INDICATION
  8. TOPROL [Concomitant]
     Indication: PRODUCT USED FOR UNKNOWN INDICATION
  9. ALLEGRA [Concomitant]
     Indication: PRODUCT USED FOR UNKNOWN INDICATION
  10. FLONASE [Concomitant]
     Indication: PRODUCT USED FOR UNKNOWN INDICATION
  11. LEVEMIR [Concomitant]
     Indication: PRODUCT USED FOR UNKNOWN INDICATION
  12. NOVOLOG [Concomitant]
     Indication: PRODUCT USED FOR UNKNOWN INDICATION
  13. VICTOZA [Concomitant]
     Indication: PRODUCT USED FOR UNKNOWN INDICATION

REACTIONS (11)
  - Deafness unilateral [Not Recovered/Not Resolved]
  - Sinus operation [Unknown]
  - Ear tube insertion [Unknown]
  - Ear pain [Unknown]
  - Ear discomfort [Unknown]
  - Tinnitus [Unknown]
  - Pain in extremity [Unknown]
  - Arthralgia [Unknown]
  - Psoriasis [Unknown]
  - Arthritis [Unknown]
  - Labyrinthitis [Unknown]
